FAERS Safety Report 9017834 (Version 2)
Quarter: 2013Q3

REPORT INFORMATION
  Report Type: Spontaneous
  Country: US (occurrence: US)
  Receive Date: 20130118
  Receipt Date: 20130904
  Transmission Date: 20140515
  Serious: No
  Sender: FDA-Public Use
  Company Number: US-BIOGENIDEC-2013BI002329

PATIENT
  Age: 41 Year
  Sex: Female

DRUGS (1)
  1. TYSABRI [Suspect]
     Indication: MULTIPLE SCLEROSIS
     Route: 042
     Dates: start: 20121130

REACTIONS (6)
  - Memory impairment [Recovered/Resolved]
  - Aphasia [Recovered/Resolved]
  - Gait disturbance [Unknown]
  - Pyrexia [Recovered/Resolved]
  - Headache [Unknown]
  - Fatigue [Unknown]
